FAERS Safety Report 21022037 (Version 4)
Quarter: 2022Q3

REPORT INFORMATION
  Report Type: Spontaneous
  Country: US (occurrence: US)
  Receive Date: 20220629
  Receipt Date: 20220805
  Transmission Date: 20221027
  Serious: No
  Sender: FDA-Public Use
  Company Number: US-AMGEN-USASP2022106059

PATIENT
  Age: 63 Year
  Sex: Female
  Weight: 62.41 kg

DRUGS (4)
  1. PROLIA [Suspect]
     Active Substance: DENOSUMAB
     Indication: Progressive multifocal leukoencephalopathy
     Dosage: 60 MILLIGRAM
     Route: 030
     Dates: start: 20220203
  2. PROLIA [Suspect]
     Active Substance: DENOSUMAB
     Indication: Off label use
  3. EVENITY [Suspect]
     Active Substance: ROMOSOZUMAB-AQQG
     Indication: Osteoporosis
     Dosage: 105 MILLIGRAM,1.17ML, Q3MO
     Route: 058
  4. ACYCLOVIR [Concomitant]
     Active Substance: ACYCLOVIR
     Dosage: 800 MILLIGRAM, ONE TABLET ORALLY FIVE TIMES A DAY

REACTIONS (5)
  - Off label use [Unknown]
  - Incorrect route of product administration [Unknown]
  - Pain in jaw [Not Recovered/Not Resolved]
  - Arthralgia [Not Recovered/Not Resolved]
  - Osteoporosis [Unknown]

NARRATIVE: CASE EVENT DATE: 20220101
